FAERS Safety Report 4356359-7 (Version None)
Quarter: 2004Q2

REPORT INFORMATION
  Report Type: 
  Country: None (occurrence: None)
  Receive Date: 20040511
  Receipt Date: 20040511
  Transmission Date: 20050107
  Serious: Yes (Other)
  Sender: FDA-Public Use
  Company Number: None

PATIENT
  Age: 70 Year
  Sex: Male
  Weight: 90.7194 kg

DRUGS (4)
  1. DIAZEPAM [Suspect]
     Dosage: 10 MG PO
     Route: 048
     Dates: start: 20040214, end: 20040214
  2. PERCOCET [Concomitant]
  3. ATORVASTATIN CALCIUM [Concomitant]
  4. WYGESIC [Concomitant]

REACTIONS (3)
  - ATRIOVENTRICULAR BLOCK FIRST DEGREE [None]
  - BRADYCARDIA [None]
  - HYPOTENSION [None]
